FAERS Safety Report 5030573-X (Version None)
Quarter: 2006Q2

REPORT INFORMATION
  Report Type: 
  Country: None (occurrence: None)
  Receive Date: 20060614
  Receipt Date: 20060606
  Transmission Date: 20061013
  Serious: Yes (Hospitalization, Other)
  Sender: FDA-Public Use
  Company Number: FRWYE612709MAY06

PATIENT
  Age: 92 Year
  Sex: Female

DRUGS (3)
  1. EFFEXOR [Suspect]
     Indication: DEPRESSION
     Dosage: 50 OR 75 MG TOTAL DAILY
     Route: 048
     Dates: end: 20060501
  2. UNSPECIFIED DIURETIC [Concomitant]
     Route: 048
  3. ANTIHYPERTENSIVES [Concomitant]

REACTIONS (4)
  - CARDIAC FAILURE [None]
  - CONDITION AGGRAVATED [None]
  - HYPERTENSION [None]
  - HYPONATRAEMIA [None]
